FAERS Safety Report 19398223 (Version 1)
Quarter: 2021Q2

REPORT INFORMATION
  Report Type: Spontaneous
  Country: US (occurrence: US)
  Receive Date: 20210609
  Receipt Date: 20210609
  Transmission Date: 20210717
  Serious: No
  Sender: FDA-Public Use
  Company Number: None

PATIENT
  Age: 74 Year
  Sex: Female
  Weight: 60.75 kg

DRUGS (15)
  1. CALCIUM [Concomitant]
     Active Substance: CALCIUM
  2. MAGNESIUM [Concomitant]
     Active Substance: MAGNESIUM
  3. LISINOPRIL. [Concomitant]
     Active Substance: LISINOPRIL
  4. K2 [Concomitant]
     Active Substance: JWH-018
  5. IRON [Concomitant]
     Active Substance: IRON
  6. XANAX [Concomitant]
     Active Substance: ALPRAZOLAM
  7. NP THYROID [Suspect]
     Active Substance: LEVOTHYROXINE\LIOTHYRONINE
     Indication: THYROID CANCER
     Dosage: ?          QUANTITY:1 TABLET(S);?
     Route: 048
  8. ZINC. [Concomitant]
     Active Substance: ZINC
  9. VITAMIN D [Concomitant]
     Active Substance: VITAMIN D NOS
  10. CURCUMIN [Concomitant]
     Active Substance: CURCUMIN
  11. VITAMIN B12 [Concomitant]
     Active Substance: CYANOCOBALAMIN
  12. COENZYME Q10 [Concomitant]
     Active Substance: DIETARY SUPPLEMENT\UBIDECARENONE
  13. OMEGA 3 [Concomitant]
     Active Substance: OMEGA-3 FATTY ACIDS
  14. B6 [Concomitant]
     Active Substance: PYRIDOXINE HYDROCHLORIDE
  15. GLUCOSAMINE/CHONDROITIN [Concomitant]

REACTIONS (1)
  - Drug ineffective [None]
